FAERS Safety Report 20065037 (Version 1)
Quarter: 2021Q4

REPORT INFORMATION
  Report Type: Spontaneous
  Country: AU (occurrence: AU)
  Receive Date: 20211113
  Receipt Date: 20211113
  Transmission Date: 20220303
  Serious: Yes (Other)
  Sender: FDA-Public Use
  Company Number: AU-ABBVIE-21K-008-4159019-00

PATIENT
  Age: 59 Year
  Sex: Female

DRUGS (9)
  1. EPILIM [Suspect]
     Active Substance: VALPROATE SODIUM
     Indication: Product used for unknown indication
     Dosage: 1 WEEK
     Route: 065
  2. EPILIM [Suspect]
     Active Substance: VALPROATE SODIUM
     Dosage: 2ND WEEK
     Route: 065
  3. EPILIM [Suspect]
     Active Substance: VALPROATE SODIUM
     Dosage: 3RD WEEK
     Route: 065
  4. EPILIM [Suspect]
     Active Substance: VALPROATE SODIUM
     Dosage: 4TH WEEK
     Route: 065
  5. LAMOTRIGINE [Interacting]
     Active Substance: LAMOTRIGINE
     Indication: Product used for unknown indication
     Dosage: 1ST WEEK
     Route: 065
  6. LAMOTRIGINE [Interacting]
     Active Substance: LAMOTRIGINE
     Dosage: 2ND WEEK
     Route: 065
  7. LAMOTRIGINE [Interacting]
     Active Substance: LAMOTRIGINE
     Dosage: 3RD WEEK
     Route: 065
  8. LAMOTRIGINE [Interacting]
     Active Substance: LAMOTRIGINE
     Dosage: 4TH WEEK
     Route: 065
  9. ARAVA [Concomitant]
     Active Substance: LEFLUNOMIDE
     Indication: Product used for unknown indication
     Route: 065

REACTIONS (8)
  - Renal impairment [Not Recovered/Not Resolved]
  - Pneumonia [Not Recovered/Not Resolved]
  - Stevens-Johnson syndrome [Recovering/Resolving]
  - Coordination abnormal [Unknown]
  - Hepatic function abnormal [Unknown]
  - Platelet count decreased [Not Recovered/Not Resolved]
  - White blood cell count decreased [Not Recovered/Not Resolved]
  - Drug interaction [Unknown]

NARRATIVE: CASE EVENT DATE: 20191103
